FAERS Safety Report 21407875 (Version 1)
Quarter: 2022Q4

REPORT INFORMATION
  Report Type: Spontaneous
  Country: CA (occurrence: CA)
  Receive Date: 20221004
  Receipt Date: 20221004
  Transmission Date: 20230112
  Serious: Yes (Hospitalization)
  Sender: FDA-Public Use
  Company Number: CA-BAYER-2022A133969

PATIENT
  Age: 55 Year
  Sex: Female
  Weight: 71 kg

DRUGS (8)
  1. ALEVE [Suspect]
     Active Substance: NAPROXEN SODIUM
     Indication: Back pain
     Dosage: 500 MG, BID
  2. KETOROLAC [Suspect]
     Active Substance: KETOROLAC TROMETHAMINE
     Indication: Pain
     Dosage: 10 MG, Q8HR
     Route: 048
  3. ATORVASTATIN [Concomitant]
     Active Substance: ATORVASTATIN
     Route: 065
  4. BACLOFEN [Concomitant]
     Active Substance: BACLOFEN
  5. FERROUS FUMARATE [Concomitant]
     Active Substance: FERROUS FUMARATE
  6. LEVOTHYROXINE [Concomitant]
     Active Substance: LEVOTHYROXINE
  7. IBUPROFEN [Concomitant]
     Active Substance: IBUPROFEN
  8. DICLOFENAC [Concomitant]
     Active Substance: DICLOFENAC

REACTIONS (8)
  - Back pain [Recovering/Resolving]
  - Abdominal pain [Recovering/Resolving]
  - Blood pressure increased [Recovering/Resolving]
  - Blood creatinine increased [Recovering/Resolving]
  - Hypertensive emergency [Recovering/Resolving]
  - Confusional state [Recovering/Resolving]
  - Aphasia [Recovering/Resolving]
  - Acute kidney injury [Recovering/Resolving]
